FAERS Safety Report 6263570-7 (Version None)
Quarter: 2009Q3

REPORT INFORMATION
  Report Type: 
  Country: None (occurrence: None)
  Receive Date: 20090710
  Receipt Date: 20090608
  Transmission Date: 20100115
  Serious: No
  Sender: FDA-Public Use
  Company Number: A0781546A

PATIENT
  Age: 71 Year
  Sex: Female

DRUGS (9)
  1. TYKERB [Suspect]
     Indication: BREAST CANCER
     Dosage: 250MG FIVE TIMES PER DAY
     Route: 048
     Dates: start: 20090401
  2. XELODA [Concomitant]
  3. ATENOLOL [Concomitant]
  4. MAXZIDE [Concomitant]
  5. LEVOXYL [Concomitant]
  6. REMERON [Concomitant]
  7. PROZAC [Concomitant]
  8. ZOMETA [Concomitant]
     Route: 042
  9. FOSAMAX [Concomitant]

REACTIONS (1)
  - MOUTH ULCERATION [None]
